FAERS Safety Report 24763248 (Version 1)
Quarter: 2024Q4

REPORT INFORMATION
  Report Type: Spontaneous
  Country: US (occurrence: US)
  Receive Date: 20241222
  Receipt Date: 20241222
  Transmission Date: 20250114
  Serious: No
  Sender: BRISTOL-MYERS SQUIBB COMPANY
  Company Number: US-BRISTOL-MYERS SQUIBB COMPANY-2024-197344

PATIENT
  Age: 85 Year
  Sex: Male
  Weight: 65.77 kg

DRUGS (7)
  1. REVLIMID [Suspect]
     Active Substance: LENALIDOMIDE
     Indication: Iron deficiency anaemia
     Route: 048
  2. ASPIRIN [Concomitant]
     Active Substance: ASPIRIN
  3. CENTRUM ADULTS [Concomitant]
  4. GLUCOSAMINE [Concomitant]
     Active Substance: GLUCOSAMINE
  5. VITAMIN C [Concomitant]
     Active Substance: ASCORBIC ACID
  6. LUTEIN [Concomitant]
     Active Substance: LUTEIN
  7. IRON [Concomitant]
     Active Substance: IRON

REACTIONS (2)
  - Dizziness [Recovered/Resolved]
  - Off label use [Unknown]
